FAERS Safety Report 17858251 (Version 2)
Quarter: 2020Q2

REPORT INFORMATION
  Report Type: Report from Study
  Country: None (occurrence: US)
  Receive Date: 20200604
  Receipt Date: 20200605
  Transmission Date: 20200714
  Serious: No
  Sender: FDA-Public Use
  Company Number: US-US WORLDMEDS, LLC-USW201905-000923

PATIENT
  Age: 82 Year
  Sex: Female

DRUGS (8)
  1. RYTARY [Concomitant]
     Active Substance: CARBIDOPA\LEVODOPA
  2. SYNTHROID [Concomitant]
     Active Substance: LEVOTHYROXINE SODIUM
  3. NUPLAZID [Concomitant]
     Active Substance: PIMAVANSERIN TARTRATE
  4. APOKYN [Suspect]
     Active Substance: APOMORPHINE HYDROCHLORIDE
     Dates: start: 2019
  5. APOKYN [Suspect]
     Active Substance: APOMORPHINE HYDROCHLORIDE
  6. SEROQUEL [Concomitant]
     Active Substance: QUETIAPINE FUMARATE
  7. APOKYN [Suspect]
     Active Substance: APOMORPHINE HYDROCHLORIDE
     Indication: PARKINSON^S DISEASE
     Route: 058
     Dates: start: 20190121
  8. DIOVAN [Concomitant]
     Active Substance: VALSARTAN

REACTIONS (1)
  - Somnolence [Recovered/Resolved]

NARRATIVE: CASE EVENT DATE: 2019
